FAERS Safety Report 14157194 (Version 2)
Quarter: 2017Q4

REPORT INFORMATION
  Report Type: Spontaneous
  Country: US (occurrence: US)
  Receive Date: 20171103
  Receipt Date: 20171221
  Transmission Date: 20180321
  Serious: Yes (Other)
  Sender: FDA-Public Use
  Company Number: US-TEVA-820617ACC

PATIENT
  Age: 34 Year
  Sex: Female
  Weight: 67.19 kg

DRUGS (2)
  1. VESTURA [Concomitant]
     Active Substance: DROSPIRENONE\ETHINYL ESTRADIOL
     Indication: HYPERTENSION
  2. PARAGARD T 380A [Suspect]
     Active Substance: COPPER
     Indication: CONTRACEPTION
     Dates: start: 20160909, end: 20171024

REACTIONS (4)
  - Device dislocation [Recovered/Resolved]
  - Pollakiuria [Unknown]
  - Dysuria [Unknown]
  - Device expulsion [Recovered/Resolved]

NARRATIVE: CASE EVENT DATE: 20171024
